FAERS Safety Report 8111332-8 (Version None)
Quarter: 2012Q1

REPORT INFORMATION
  Report Type: 
  Country: None (occurrence: None)
  Receive Date: 20120203
  Receipt Date: 20110908
  Transmission Date: 20120608
  Serious: No
  Sender: FDA-Public Use
  Company Number: US-GLAXOSMITHKLINE-A0943898A

PATIENT
  Age: 19 Year
  Sex: Male

DRUGS (2)
  1. NO CONCURRENT MEDICATION [Concomitant]
  2. LAMOTRIGINE [Suspect]
     Indication: EPILEPSY
     Dosage: 500MG UNKNOWN
     Route: 048

REACTIONS (1)
  - ANTICONVULSANT DRUG LEVEL DECREASED [None]
